FAERS Safety Report 16081285 (Version 1)
Quarter: 2019Q1

REPORT INFORMATION
  Report Type: Spontaneous
  Country: GB (occurrence: GB)
  Receive Date: 20190316
  Receipt Date: 20190316
  Transmission Date: 20190418
  Serious: Yes (Death, Other)
  Sender: FDA-Public Use
  Company Number: GB-ACCORD-113567

PATIENT
  Age: 71 Year
  Sex: Male
  Weight: 92 kg

DRUGS (14)
  1. ACETYLSALICYLIC ACID [Suspect]
     Active Substance: ASPIRIN
     Indication: MYOCARDIAL INFARCTION
     Route: 048
     Dates: start: 20180822, end: 20180824
  2. FOSTAIR [Concomitant]
     Active Substance: BECLOMETHASONE\FORMOTEROL
  3. ENOXAPARIN [Suspect]
     Active Substance: ENOXAPARIN
     Indication: MYOCARDIAL INFARCTION
     Route: 058
     Dates: start: 20180822, end: 20180824
  4. AMLODIPINE [Concomitant]
     Active Substance: AMLODIPINE BESYLATE
  5. SALBUTAMOL [Concomitant]
     Active Substance: ALBUTEROL
  6. CLOPIDOGREL [Suspect]
     Active Substance: CLOPIDOGREL BISULFATE
     Indication: MYOCARDIAL INFARCTION
     Route: 048
     Dates: start: 20180822, end: 20180824
  7. MORPHINE [Concomitant]
     Active Substance: MORPHINE
  8. MIRABEGRON [Concomitant]
     Active Substance: MIRABEGRON
  9. TAMSULOSIN/TAMSULOSIN HYDROCHLORIDE [Concomitant]
  10. SIMVASTATIN. [Concomitant]
     Active Substance: SIMVASTATIN
  11. LANSOPRAZOLE. [Concomitant]
     Active Substance: LANSOPRAZOLE
  12. PARACETAMOL [Concomitant]
     Active Substance: ACETAMINOPHEN
  13. BISOPROLOL [Concomitant]
     Active Substance: BISOPROLOL
  14. FONDAPARINUX [Concomitant]
     Active Substance: FONDAPARINUX

REACTIONS (3)
  - Extradural haematoma [Fatal]
  - Spinal cord haemorrhage [Not Recovered/Not Resolved]
  - Sensory loss [Unknown]

NARRATIVE: CASE EVENT DATE: 20180824
